FAERS Safety Report 7774214-7 (Version None)
Quarter: 2011Q3

REPORT INFORMATION
  Report Type: 
  Country: None (occurrence: None)
  Receive Date: 20110923
  Receipt Date: 20110920
  Transmission Date: 20111222
  Serious: Yes (Hospitalization, Congenital Anomaly, Other)
  Sender: FDA-Public Use
  Company Number: US-PFIZER INC-2011151123

PATIENT
  Sex: Male
  Weight: 2.7 kg

DRUGS (8)
  1. ZOLOFT [Suspect]
     Indication: DEPRESSION
     Dosage: 25MG FOR 7 DAYS
     Route: 064
     Dates: start: 20060303
  2. ZOLOFT [Suspect]
     Dosage: 50 MG DAILY
     Route: 064
     Dates: start: 20060301, end: 20060101
  3. REGLAN [Concomitant]
     Indication: VOMITING
     Dosage: UNK
     Route: 064
  4. ZOLOFT [Suspect]
     Dosage: 100 MG, UNK
     Route: 064
     Dates: start: 20060518
  5. ZOFRAN [Concomitant]
     Indication: VOMITING
     Dosage: UNK
     Route: 064
  6. TYLENOL-500 [Concomitant]
     Dosage: 25-500MG
     Route: 064
     Dates: start: 20061201
  7. ZOLOFT [Suspect]
     Dosage: 100 MG, 1X/DAY
     Route: 064
     Dates: start: 20070404
  8. PRENATAL VITAMINS [Concomitant]
     Dosage: UNK
     Route: 064

REACTIONS (12)
  - TRUNCUS ARTERIOSUS PERSISTENT [None]
  - PULMONARY VALVE STENOSIS [None]
  - PULMONARY CONGESTION [None]
  - MATERNAL EXPOSURE DURING PREGNANCY [None]
  - VENTRICULAR SEPTAL DEFECT [None]
  - TRICUSPID VALVE INCOMPETENCE [None]
  - COARCTATION OF THE AORTA [None]
  - PULMONARY VALVE INCOMPETENCE [None]
  - CARDIOMEGALY [None]
  - VOCAL CORD PARALYSIS [None]
  - PHIMOSIS [None]
  - ATRIAL SEPTAL DEFECT [None]
